FAERS Safety Report 19400913 (Version 1)
Quarter: 2021Q2

REPORT INFORMATION
  Report Type: Report from Study
  Country: None (occurrence: US)
  Receive Date: 20210611
  Receipt Date: 20210611
  Transmission Date: 20210717
  Serious: Yes (Other)
  Sender: FDA-Public Use
  Company Number: US-ABBVIE-21K-163-3943478-00

PATIENT
  Sex: Female

DRUGS (1)
  1. HUMIRA [Suspect]
     Active Substance: ADALIMUMAB
     Indication: PSORIATIC ARTHROPATHY
     Route: 058
     Dates: start: 202103, end: 20210501

REACTIONS (5)
  - Hernia [Unknown]
  - Fatigue [Unknown]
  - Post procedural infection [Recovered/Resolved]
  - Injection site urticaria [Recovered/Resolved]
  - Gastric bypass [Unknown]

NARRATIVE: CASE EVENT DATE: 2021
